FAERS Safety Report 19151094 (Version 1)
Quarter: 2021Q2

REPORT INFORMATION
  Report Type: Spontaneous
  Country: CZ (occurrence: CZ)
  Receive Date: 20210419
  Receipt Date: 20210419
  Transmission Date: 20210717
  Serious: Yes (Life-Threatening)
  Sender: FDA-Public Use
  Company Number: CZ-TEVA-2021-CZ-1901025

PATIENT
  Age: 37 Year
  Sex: Female

DRUGS (6)
  1. QUETIAPIN [Suspect]
     Active Substance: QUETIAPINE
     Indication: DEPRESSION
     Dosage: CURRENT DOSAGE, 12.5MG
     Route: 065
  2. ARGOFAN [Concomitant]
     Active Substance: VENLAFAXINE HYDROCHLORIDE
     Dosage: AT THE START, 225MG
     Route: 048
     Dates: start: 2018
  3. LYRICA [Concomitant]
     Active Substance: PREGABALIN
     Indication: DEPRESSION
     Dosage: 150MG
     Route: 048
     Dates: start: 2018
  4. QUETIAPIN [Suspect]
     Active Substance: QUETIAPINE
     Dosage: IN FIRST YEAR 400MG/DAY
     Route: 048
     Dates: start: 201808
  5. ARGOFAN [Concomitant]
     Active Substance: VENLAFAXINE HYDROCHLORIDE
     Indication: DEPRESSION
     Dosage: CURRENT DOSAGE, 37.5MG
  6. QUETIAPIN [Suspect]
     Active Substance: QUETIAPINE
     Dosage: 200MG
     Route: 065
     Dates: start: 2019

REACTIONS (1)
  - Pituitary tumour [Not Recovered/Not Resolved]

NARRATIVE: CASE EVENT DATE: 202008
